FAERS Safety Report 17790395 (Version 1)
Quarter: 2020Q2

REPORT INFORMATION
  Report Type: Spontaneous
  Country: CH (occurrence: CH)
  Receive Date: 20200515
  Receipt Date: 20200515
  Transmission Date: 20200714
  Serious: Yes (Other)
  Sender: FDA-Public Use
  Company Number: NVSC2020CH096896

PATIENT
  Sex: Female

DRUGS (1)
  1. GILENYA [Suspect]
     Active Substance: FINGOLIMOD HYDROCHLORIDE
     Indication: MULTIPLE SCLEROSIS
     Dosage: UNK UKN
     Route: 065
     Dates: start: 201911

REACTIONS (3)
  - Oropharyngeal pain [Recovered/Resolved]
  - Anosmia [Recovered/Resolved]
  - SARS-CoV-2 test positive [Recovered/Resolved]
